FAERS Safety Report 5431872-X (Version None)
Quarter: 2007Q3

REPORT INFORMATION
  Report Type: 
  Country: None (occurrence: None)
  Receive Date: 20070731
  Receipt Date: 20070611
  Transmission Date: 20080115
  Serious: No
  Sender: FDA-Public Use
  Company Number: US200706002691

PATIENT
  Age: 58 Year
  Sex: Female

DRUGS (8)
  1. BYETTA [Suspect]
     Indication: TYPE 2 DIABETES MELLITUS
     Dosage: 5 UG, 2/D, SUBCUTANEOUS
     Route: 058
     Dates: start: 20070607
  2. EXENATIDE 5MCG PEN, DISPOSABLE DEVICE (EXENATIDE PEN (5 MCG)) PEN,DISP [Concomitant]
  3. CINNAMON (CINNAMOMUM VERUM) [Concomitant]
  4. ALPHA-LIPOIC ACID (THIOCTIC ACID) [Concomitant]
  5. VITAMIN B [Concomitant]
  6. ASCORBIC ACID [Concomitant]
  7. CHROMIUM (CHROMIUM) [Concomitant]
  8. GINGER (ZINGIBER OFFICINALE RHIZOME) [Concomitant]

REACTIONS (3)
  - HEADACHE [None]
  - NAUSEA [None]
  - VOMITING [None]
